FAERS Safety Report 13941763 (Version 1)
Quarter: 2017Q3

REPORT INFORMATION
  Report Type: Spontaneous
  Country: BR (occurrence: BR)
  Receive Date: 20170906
  Receipt Date: 20170906
  Transmission Date: 20171127
  Serious: Yes (Other)
  Sender: FDA-Public Use
  Company Number: BR-BIOMARINAP-BR-2017-115287

PATIENT
  Age: 10 Year
  Sex: Female
  Weight: 22.5 kg

DRUGS (1)
  1. ALDURAZYME [Suspect]
     Active Substance: LARONIDASE
     Indication: MUCOPOLYSACCHARIDOSIS I
     Dosage: UNK
     Route: 041
     Dates: start: 20100101, end: 20170818

REACTIONS (1)
  - Pharyngeal disorder [Not Recovered/Not Resolved]

NARRATIVE: CASE EVENT DATE: 2017
